FAERS Safety Report 7510980-3 (Version None)
Quarter: 2011Q2

REPORT INFORMATION
  Report Type: 
  Country: None (occurrence: None)
  Receive Date: 20110531
  Receipt Date: 20110523
  Transmission Date: 20111010
  Serious: No
  Sender: FDA-Public Use
  Company Number: US-PFIZER INC-2011111059

PATIENT
  Sex: Female

DRUGS (3)
  1. VICODIN [Concomitant]
  2. LIPITOR [Suspect]
     Indication: BLOOD PRESSURE
     Dosage: UNK
  3. FERROUS SULFATE TAB [Suspect]
     Indication: BLOOD PRESSURE ABNORMAL
     Dosage: UNK

REACTIONS (2)
  - DIARRHOEA [None]
  - ABNORMAL FAECES [None]
